FAERS Safety Report 13031787 (Version 2)
Quarter: 2017Q1

REPORT INFORMATION
  Report Type: Spontaneous
  Country: JP (occurrence: JP)
  Receive Date: 20161215
  Receipt Date: 20170104
  Transmission Date: 20170428
  Serious: Yes (Hospitalization, Other)
  Sender: FDA-Public Use
  Company Number: JP-009507513-1612JPN004767

PATIENT
  Age: 52 Year
  Sex: Female
  Weight: 43.4 kg

DRUGS (13)
  1. REBETOL [Suspect]
     Active Substance: RIBAVIRIN
     Indication: HEPATITIS C
     Dosage: 600 MG, UNK
     Route: 048
     Dates: start: 20160621, end: 20160913
  2. PULMICORT TURBUHALER [Concomitant]
     Active Substance: BUDESONIDE
     Indication: ASTHMA
     Dosage: 1 DF, BID
     Route: 055
     Dates: start: 2003
  3. URSO [Concomitant]
     Active Substance: URSODIOL
     Indication: HEPATITIS C
     Dosage: 200 MG, TID
     Route: 048
     Dates: start: 2003
  4. VALACYCLOVIR HYDROCHLORIDE. [Concomitant]
     Active Substance: VALACYCLOVIR HYDROCHLORIDE
     Indication: HERPES ZOSTER
     Dosage: 500 MG, TID
     Route: 048
     Dates: start: 20160902, end: 20160913
  5. DRAMAMINE [Concomitant]
     Active Substance: DIMENHYDRINATE
     Indication: MENIERE^S DISEASE
     Dosage: 50 MG, BID
     Route: 048
     Dates: start: 2003
  6. CONSTAN [Concomitant]
     Active Substance: ALPRAZOLAM
     Indication: ANXIETY
     Dosage: 0.4 MG, TID
     Route: 048
     Dates: start: 2003
  7. MUCODYNE [Concomitant]
     Active Substance: CARBOCYSTEINE
     Indication: ASTHMA
     Dosage: 500 MG, BID
     Route: 048
     Dates: start: 2003
  8. MERISLON [Concomitant]
     Active Substance: BETAHISTINE MESILATE
     Indication: MENIERE^S DISEASE
     Dosage: 6 MG, TID
     Route: 048
     Dates: start: 2003
  9. BLOPRESS [Concomitant]
     Active Substance: CANDESARTAN CILEXETIL
     Indication: HYPERTENSION
     Dosage: 8 MG, QD
     Route: 048
     Dates: start: 2003
  10. FLORID [Concomitant]
     Active Substance: MICONAZOLE
     Indication: STOMATITIS
     Dosage: 1.25 MG, QID
     Route: 048
     Dates: start: 20160816, end: 20160915
  11. SOVALDI [Suspect]
     Active Substance: SOFOSBUVIR
     Indication: HEPATITIS C
     Dosage: 400 MG, QD
     Route: 048
     Dates: start: 20160621, end: 20160913
  12. MIGSIS [Concomitant]
     Active Substance: LOMERIZINE HYDROCHLORIDE
     Indication: MIGRAINE
     Dosage: 5 MG, BID
     Route: 048
     Dates: start: 201512
  13. LENDORMIN [Concomitant]
     Active Substance: BROTIZOLAM
     Indication: ANXIETY
     Dosage: 0.25 MG, QD
     Route: 048
     Dates: start: 2003

REACTIONS (1)
  - Castleman^s disease [Not Recovered/Not Resolved]

NARRATIVE: CASE EVENT DATE: 20160915
